FAERS Safety Report 5813341-8 (Version None)
Quarter: 2008Q3

REPORT INFORMATION
  Report Type: 
  Country: None (occurrence: None)
  Receive Date: 20080717
  Receipt Date: 20080714
  Transmission Date: 20090109
  Serious: Yes (Other)
  Sender: FDA-Public Use
  Company Number: NL-BRISTOL-MYERS SQUIBB COMPANY-14264188

PATIENT
  Age: 65 Year

DRUGS (2)
  1. CISPLATIN [Suspect]
     Indication: NON-SMALL CELL LUNG CANCER
  2. GEMCITABINE [Concomitant]

REACTIONS (3)
  - CEREBRAL INFARCTION [None]
  - NECROSIS ISCHAEMIC [None]
  - RENAL FAILURE [None]
